FAERS Safety Report 12676009 (Version 2)
Quarter: 2016Q4

REPORT INFORMATION
  Report Type: Other
  Country: FR (occurrence: FR)
  Receive Date: 20160823
  Receipt Date: 20161003
  Transmission Date: 20170207
  Serious: Yes (Death, Life-Threatening, Hospitalization, Other)
  Sender: FDA-Public Use
  Company Number: FR-ARIAD PHARMACEUTICALS, INC-2016FR006856

PATIENT
  Age: 70 Year
  Sex: Female
  Weight: 69.84 kg

DRUGS (26)
  1. DEPOCYTE [Suspect]
     Active Substance: CYTARABINE
     Indication: ACUTE LYMPHOCYTIC LEUKAEMIA
     Dosage: 50 MG, SINGLE
     Route: 037
     Dates: start: 20160616, end: 20160616
  2. ICLUSIG [Suspect]
     Active Substance: PONATINIB
     Dosage: 30 MG, QD
     Route: 048
     Dates: start: 20160616, end: 20160620
  3. ARACYTINE [Suspect]
     Active Substance: CYTARABINE
     Indication: ACUTE LYMPHOCYTIC LEUKAEMIA
     Dosage: 40 MG, SINGLE
     Route: 037
     Dates: start: 20160530, end: 20160530
  4. ARACYTINE [Suspect]
     Active Substance: CYTARABINE
     Dosage: 40 MG, SINGLE
     Route: 037
     Dates: start: 20160608, end: 20160608
  5. TARDYFERON [Concomitant]
     Active Substance: FERROUS SULFATE
     Indication: PRODUCT USED FOR UNKNOWN INDICATION
     Dosage: 80 MG, QD
     Route: 065
  6. OMEPRAZOLE. [Concomitant]
     Active Substance: OMEPRAZOLE
     Indication: PRODUCT USED FOR UNKNOWN INDICATION
     Dosage: 20 MG, QD
  7. HYDROCORTISONE. [Concomitant]
     Active Substance: HYDROCORTISONE
     Dosage: 20 MG, SINGLE
     Route: 037
     Dates: start: 20160601, end: 20160601
  8. HYDROCORTISONE. [Concomitant]
     Active Substance: HYDROCORTISONE
     Dosage: 20 MG, SINGLE
     Route: 037
     Dates: start: 20160608, end: 20160608
  9. DEXAMETHASONE. [Concomitant]
     Active Substance: DEXAMETHASONE
     Indication: PRODUCT USED FOR UNKNOWN INDICATION
     Dosage: 20 MG, WEEKLY
  10. METHOTREXATE (METHOTREXATE SODIUM) [Suspect]
     Active Substance: METHOTREXATE SODIUM
     Dosage: 15 MG, SINGLE
     Route: 037
     Dates: start: 20160601, end: 20160601
  11. ICLUSIG [Suspect]
     Active Substance: PONATINIB
     Indication: ACUTE LYMPHOCYTIC LEUKAEMIA
     Dosage: 45 MG, QD
     Route: 048
     Dates: start: 20160606, end: 20160615
  12. DEXAMETHASONE. [Suspect]
     Active Substance: DEXAMETHASONE
     Indication: PRODUCT USED FOR UNKNOWN INDICATION
     Dosage: 20 MG, WEEKLY
     Dates: start: 20160606
  13. CLONAZEPAM. [Concomitant]
     Active Substance: CLONAZEPAM
     Indication: PRODUCT USED FOR UNKNOWN INDICATION
     Dosage: 2 DF, TID
     Route: 047
  14. VINDESINE [Concomitant]
     Active Substance: VINDESINE
     Indication: PRODUCT USED FOR UNKNOWN INDICATION
     Dosage: 2 MG/M2, WEEKLY
     Route: 042
  15. ARACYTINE [Suspect]
     Active Substance: CYTARABINE
     Dosage: 40 MG, SINGLE
     Route: 037
     Dates: start: 20160601, end: 20160601
  16. METHOTREXATE (METHOTREXATE SODIUM) [Suspect]
     Active Substance: METHOTREXATE SODIUM
     Dosage: 15 MG, SINGLE
     Route: 037
  17. ARACYTINE [Suspect]
     Active Substance: CYTARABINE
     Dosage: 40 MG, SINGLE
     Route: 037
  18. VINDESINE SULFATE [Suspect]
     Active Substance: VINDESINE SULFATE
     Indication: ACUTE LYMPHOCYTIC LEUKAEMIA
     Dosage: 2 MG/M2, WEEKLY
     Route: 042
     Dates: start: 20160606
  19. HYDROCORTISONE. [Concomitant]
     Active Substance: HYDROCORTISONE
     Dosage: 20 MG, SINGLE
     Route: 037
     Dates: start: 20160603, end: 20160603
  20. HYDROCORTISONE. [Concomitant]
     Active Substance: HYDROCORTISONE
     Dosage: 20 MG, SINGLE
     Route: 037
  21. METHOTREXATE (METHOTREXATE SODIUM) [Suspect]
     Active Substance: METHOTREXATE SODIUM
     Dosage: 15 MG, SINGLE
     Route: 037
     Dates: start: 20160608, end: 20160608
  22. CACIT VITAMINA D3 [Concomitant]
     Active Substance: CALCIUM CARBONATE\CHOLECALCIFEROL
     Indication: PRODUCT USED FOR UNKNOWN INDICATION
     Dosage: 2 DF, QD
     Route: 048
  23. HYDROCORTISONE. [Concomitant]
     Active Substance: HYDROCORTISONE
     Indication: PRODUCT USED FOR UNKNOWN INDICATION
     Dosage: 20 MG, SINGLE
     Route: 037
     Dates: start: 20160530, end: 20160530
  24. ARACYTINE [Suspect]
     Active Substance: CYTARABINE
     Dosage: 40 MG, SINGLE
     Route: 037
     Dates: start: 20160603, end: 20160603
  25. METHOTREXATE (METHOTREXATE SODIUM) [Suspect]
     Active Substance: METHOTREXATE SODIUM
     Indication: ACUTE LYMPHOCYTIC LEUKAEMIA
     Dosage: 15 MG, SINGLE
     Route: 037
     Dates: start: 20160530, end: 20160530
  26. METHOTREXATE (METHOTREXATE SODIUM) [Suspect]
     Active Substance: METHOTREXATE SODIUM
     Dosage: 15 MG, SINGLE
     Route: 037
     Dates: start: 20160603, end: 20160603

REACTIONS (17)
  - Encephalopathy [Fatal]
  - Renal failure [Fatal]
  - Histiocytosis haematophagic [Unknown]
  - Hypertriglyceridaemia [Unknown]
  - Agranulocytosis [Not Recovered/Not Resolved]
  - Bicytopenia [Unknown]
  - Inflammation [Unknown]
  - Rash [Unknown]
  - Coma [Fatal]
  - Anaemia [Fatal]
  - Hepatocellular injury [Not Recovered/Not Resolved]
  - Lumbar vertebral fracture [Unknown]
  - Condition aggravated [Unknown]
  - Pyrexia [Unknown]
  - Cholestasis [Fatal]
  - Thrombocytopenia [Fatal]
  - Acute kidney injury [Unknown]

NARRATIVE: CASE EVENT DATE: 20160610
